FAERS Safety Report 17572122 (Version 1)
Quarter: 2020Q1

REPORT INFORMATION
  Report Type: Spontaneous
  Country: US (occurrence: US)
  Receive Date: 20200323
  Receipt Date: 20200323
  Transmission Date: 20200409
  Serious: Yes (Other)
  Sender: FDA-Public Use
  Company Number: US-GLAXOSMITHKLINE-US2020AMR049839

PATIENT
  Age: 58 Year
  Sex: Female

DRUGS (2)
  1. TRELEGY ELLIPTA [Suspect]
     Active Substance: FLUTICASONE FUROATE\UMECLIDINIUM BROMIDE\VILANTEROL TRIFENATATE
     Indication: PRODUCT USED FOR UNKNOWN INDICATION
     Dosage: 100, 62.5 AND 25 MCG
     Route: 065
     Dates: start: 201912
  2. VENTOLIN HFA [Suspect]
     Active Substance: ALBUTEROL SULFATE
     Indication: PRODUCT USED FOR UNKNOWN INDICATION
     Dosage: UNK
     Route: 065
     Dates: start: 2009

REACTIONS (10)
  - Urethral cancer [Unknown]
  - Nephrectomy [Unknown]
  - Hypercapnia [Unknown]
  - Traumatic lung injury [Unknown]
  - Renal cancer [Unknown]
  - Urethral operation [Unknown]
  - Panic attack [Unknown]
  - Dyspnoea [Unknown]
  - Product dose omission [Unknown]
  - Bronchitis [Unknown]

NARRATIVE: CASE EVENT DATE: 201505
